FAERS Safety Report 6671820-8 (Version None)
Quarter: 2010Q2

REPORT INFORMATION
  Report Type: 
  Country: None (occurrence: None)
  Receive Date: 20100407
  Receipt Date: 20100331
  Transmission Date: 20101027
  Serious: Yes (Hospitalization)
  Sender: FDA-Public Use
  Company Number: FR-BAXTER-2010BH008681

PATIENT
  Age: 39 Year
  Sex: Male

DRUGS (11)
  1. HOLOXAN BAXTER [Suspect]
     Indication: LIPOSARCOMA
     Route: 042
     Dates: start: 20091221, end: 20091223
  2. HOLOXAN BAXTER [Suspect]
     Route: 042
     Dates: start: 20100111, end: 20100113
  3. UROMITEXAN BAXTER [Suspect]
     Indication: LIPOSARCOMA
     Route: 042
     Dates: start: 20091221, end: 20091223
  4. UROMITEXAN BAXTER [Suspect]
     Route: 042
     Dates: start: 20100111, end: 20100113
  5. ADRIBLASTINE [Suspect]
     Indication: LIPOSARCOMA
     Route: 042
     Dates: start: 20100111, end: 20100111
  6. ADRIBLASTINE [Suspect]
     Route: 042
     Dates: start: 20091221, end: 20091221
  7. BRISTOPEN [Suspect]
     Indication: LIPOSARCOMA
     Route: 048
     Dates: start: 20100129, end: 20100206
  8. TARGOCID [Concomitant]
     Indication: ANTIBIOTIC THERAPY
     Route: 065
     Dates: start: 20100126, end: 20100128
  9. TINZAPARIN [Concomitant]
     Indication: JUGULAR VEIN THROMBOSIS
     Route: 058
     Dates: start: 20100128
  10. GURONSAN [Concomitant]
     Indication: DRUG USE FOR UNKNOWN INDICATION
     Route: 048
     Dates: start: 20100201
  11. IXPRIM [Concomitant]
     Indication: DRUG USE FOR UNKNOWN INDICATION
     Route: 065

REACTIONS (1)
  - CYTOLYTIC HEPATITIS [None]
